FAERS Safety Report 21860913 (Version 1)
Quarter: 2023Q1

REPORT INFORMATION
  Report Type: Spontaneous
  Country: US (occurrence: None)
  Receive Date: 20230113
  Receipt Date: 20230113
  Transmission Date: 20230418
  Serious: No
  Sender: FDA-Public Use
  Company Number: None

PATIENT
  Age: 49 Year
  Sex: Male

DRUGS (1)
  1. METHYLPHENIDATE [Suspect]
     Active Substance: METHYLPHENIDATE
     Indication: Attention deficit hyperactivity disorder

REACTIONS (4)
  - Asthenia [None]
  - Agitation [None]
  - Irritability [None]
  - Disturbance in attention [None]

NARRATIVE: CASE EVENT DATE: 20230112
